FAERS Safety Report 6202112-9 (Version None)
Quarter: 2009Q2

REPORT INFORMATION
  Report Type: 
  Country: None (occurrence: None)
  Receive Date: 20090526
  Receipt Date: 20090519
  Transmission Date: 20091009
  Serious: Yes (Hospitalization)
  Sender: FDA-Public Use
  Company Number: KZ-JNJFOC-20090505323

PATIENT
  Age: 19 Year
  Sex: Female

DRUGS (3)
  1. TOPAMAX [Suspect]
     Route: 048
  2. TOPAMAX [Suspect]
     Indication: EPILEPSY
     Route: 048
  3. DEPAKENE [Concomitant]
     Route: 065

REACTIONS (4)
  - EPILEPSY [None]
  - GLOMERULONEPHRITIS MEMBRANOUS [None]
  - PANCREATITIS [None]
  - PYELONEPHRITIS CHRONIC [None]
